FAERS Safety Report 7749526-3 (Version None)
Quarter: 2011Q3

REPORT INFORMATION
  Report Type: 
  Country: None (occurrence: None)
  Receive Date: 20110914
  Receipt Date: 20110906
  Transmission Date: 20111222
  Serious: Yes (Death, Hospitalization)
  Sender: FDA-Public Use
  Company Number: US-CELGENEUS-163-21880-11090701

PATIENT
  Sex: Female

DRUGS (1)
  1. REVLIMID [Suspect]
     Indication: MULTIPLE MYELOMA
     Dosage: 15 MILLIGRAM
     Route: 048
     Dates: start: 20110601

REACTIONS (7)
  - DEATH [None]
  - HIP FRACTURE [None]
  - NAUSEA [None]
  - VOMITING [None]
  - CONCUSSION [None]
  - FALL [None]
  - DIARRHOEA [None]
